FAERS Safety Report 9857750 (Version 1)
Quarter: 2014Q1

REPORT INFORMATION
  Report Type: Spontaneous
  Country: US (occurrence: US)
  Receive Date: 20140131
  Receipt Date: 20140131
  Transmission Date: 20141002
  Serious: No
  Sender: FDA-Public Use
  Company Number: US-BIOGENIDEC-2014BI008266

PATIENT
  Sex: Female
  Weight: 96 kg

DRUGS (7)
  1. TECFIDERA [Suspect]
     Indication: MULTIPLE SCLEROSIS
     Route: 048
     Dates: start: 201311
  2. TIZINIDINE [Concomitant]
  3. AMLODIPINE [Concomitant]
  4. TOVIAZ [Concomitant]
  5. ALENDRONATE [Concomitant]
  6. MICARDIS [Concomitant]
  7. TRIMETHOPRIM [Concomitant]

REACTIONS (2)
  - Alopecia [Unknown]
  - Ligament sprain [Unknown]
